FAERS Safety Report 8246623-3 (Version None)
Quarter: 2012Q1

REPORT INFORMATION
  Report Type: 
  Country: None (occurrence: None)
  Receive Date: 20120330
  Receipt Date: 20120326
  Transmission Date: 20120608
  Serious: Yes (Other)
  Sender: FDA-Public Use
  Company Number: US-PFIZER INC-2012078534

PATIENT

DRUGS (2)
  1. CEPHALEXIN [Suspect]
     Indication: SKIN INFECTION
     Dosage: UNK
  2. TIKOSYN [Suspect]
     Dosage: UNK

REACTIONS (2)
  - SKIN INFECTION [None]
  - CELLULITIS [None]
